FAERS Safety Report 7235650-0 (Version None)
Quarter: 2011Q1

REPORT INFORMATION
  Report Type: 
  Country: None (occurrence: None)
  Receive Date: 20110120
  Receipt Date: 20101119
  Transmission Date: 20110831
  Serious: No
  Sender: FDA-Public Use
  Company Number: US-BAYER-2011-005593

PATIENT
  Sex: Male
  Weight: 91 kg

DRUGS (3)
  1. CRESTOR [Concomitant]
  2. DIOVAN [Concomitant]
  3. ALEVE (CAPLET) [Suspect]
     Indication: ANALGESIC THERAPY
     Dosage: DAILY DOSE 2 DF
     Route: 048
     Dates: start: 20101111

REACTIONS (1)
  - RASH MACULAR [None]
